FAERS Safety Report 9143875 (Version 1)
Quarter: 2013Q1

REPORT INFORMATION
  Report Type: Report from Study
  Country: FR (occurrence: FR)
  Receive Date: 20130306
  Receipt Date: 20130306
  Transmission Date: 20140127
  Serious: Yes (Hospitalization)
  Sender: FDA-Public Use
  Company Number: FR-CELGENEUS-056-C4047-12031247

PATIENT
  Age: 78 Year
  Sex: Male
  Weight: 62 kg

DRUGS (17)
  1. CC-4047 [Suspect]
     Indication: PLASMA CELL MYELOMA
     Dosage: 4 MILLIGRAM
     Route: 048
     Dates: start: 20120214, end: 20120228
  2. CC-4047 [Suspect]
     Dosage: 3 MILLIGRAM
     Route: 048
     Dates: start: 20120313, end: 20120320
  3. CC-4047 [Suspect]
     Dosage: 3 MILLIGRAM
     Route: 048
     Dates: start: 20120324
  4. DEXAMETHASONE [Suspect]
     Indication: PLASMA CELL MYELOMA
     Dosage: 20 MILLIGRAM
     Route: 065
     Dates: start: 20120214, end: 20120228
  5. DEXAMETHASONE [Suspect]
     Dosage: 20 MILLIGRAM
     Route: 065
     Dates: start: 20120313, end: 20120320
  6. DEXAMETHASONE [Suspect]
     Dosage: 20 MILLIGRAM
     Route: 065
     Dates: start: 20120403
  7. AUGMENTIN [Concomitant]
     Indication: BRONCHITIS
     Route: 048
     Dates: start: 20120207, end: 20120214
  8. AUGMENTIN [Concomitant]
     Dosage: 3 GRAM
     Route: 048
     Dates: start: 20120303, end: 20120306
  9. ASPEGIC [Concomitant]
     Indication: THROMBOSIS PROPHYLAXIS
     Dosage: 100 MILLIGRAM
     Route: 048
     Dates: start: 20120214, end: 20120305
  10. ZOMETA [Concomitant]
     Indication: BONE LESION
     Route: 041
     Dates: start: 20120214
  11. SKENAN [Concomitant]
     Indication: BACK PAIN
     Dosage: 60 MILLIGRAM
     Route: 048
     Dates: start: 20120220, end: 20120305
  12. SKENAN [Concomitant]
     Dosage: 2 CAPSULE
     Route: 048
     Dates: start: 20120306, end: 20120313
  13. SKENAN [Concomitant]
     Dosage: 2 CAPSULE
     Route: 048
  14. ZOLOFT [Concomitant]
     Indication: PROPHYLAXIS
     Dosage: 50 MG X 1.5/DAY
     Route: 048
     Dates: start: 20120308, end: 20120308
  15. PLATELET CONCENTRATE [Concomitant]
     Indication: THROMBOCYTOPENIA
     Route: 065
     Dates: start: 20120228, end: 20120228
  16. TRINITRINE [Concomitant]
     Indication: PRODUCT USED FOR UNKNOWN INDICATION
     Route: 055
  17. BLOOD [Concomitant]
     Indication: PRODUCT USED FOR UNKNOWN INDICATION
     Route: 065
     Dates: start: 20120228

REACTIONS (6)
  - Enterobacter infection [Recovered/Resolved]
  - Pyrexia [Recovered/Resolved]
  - Acute pulmonary oedema [Recovered/Resolved]
  - Hypertensive crisis [Recovered/Resolved]
  - Confusional state [Recovered/Resolved]
  - Spinal pain [Recovered/Resolved]
